FAERS Safety Report 8049450-5 (Version None)
Quarter: 2012Q1

REPORT INFORMATION
  Report Type: 
  Country: None (occurrence: None)
  Receive Date: 20120117
  Receipt Date: 20120112
  Transmission Date: 20120608
  Serious: Yes (Other)
  Sender: FDA-Public Use
  Company Number: US-PFIZER INC-2012009937

PATIENT
  Sex: Female
  Weight: 77.551 kg

DRUGS (3)
  1. LIPITOR [Suspect]
     Indication: BLOOD CHOLESTEROL INCREASED
     Dosage: 10 MG, 1X/DAY
     Route: 048
     Dates: end: 20100101
  2. GLIPIZIDE [Concomitant]
     Indication: DIABETES MELLITUS
     Dosage: 10 MG, 2X/DAY
  3. AVANDAMET [Concomitant]
     Indication: DIABETES MELLITUS
     Dosage: 1004 MG, 1X/DAY

REACTIONS (3)
  - WEIGHT DECREASED [None]
  - RASH [None]
  - MALAISE [None]
